FAERS Safety Report 17434927 (Version 6)
Quarter: 2021Q1

REPORT INFORMATION
  Report Type: Report from Study
  Country: BR (occurrence: BR)
  Receive Date: 20200219
  Receipt Date: 20210324
  Transmission Date: 20210419
  Serious: Yes (Other)
  Sender: FDA-Public Use
  Company Number: NVSC2019BR059161

PATIENT
  Age: 52 Year
  Sex: Female

DRUGS (6)
  1. COSENTYX [Suspect]
     Active Substance: SECUKINUMAB
     Dosage: UNK
     Route: 065
     Dates: start: 201910
  2. CORTISONE [Suspect]
     Active Substance: CORTISONE
     Indication: PRODUCT USED FOR UNKNOWN INDICATION
     Dosage: UNK
     Route: 065
  3. COSENTYX [Suspect]
     Active Substance: SECUKINUMAB
     Indication: PSORIATIC ARTHROPATHY
     Dosage: 2 DF, QMO
     Route: 065
     Dates: start: 20191031
  4. COSENTYX [Suspect]
     Active Substance: SECUKINUMAB
     Dosage: 300 MG
     Route: 065
     Dates: start: 20201125
  5. AZITHROMYCIN ANHYDROUS. [Suspect]
     Active Substance: AZITHROMYCIN ANHYDROUS
     Indication: PRODUCT USED FOR UNKNOWN INDICATION
     Dosage: UNK
     Route: 065
  6. COSENTYX [Suspect]
     Active Substance: SECUKINUMAB
     Dosage: 300 MG
     Route: 065
     Dates: start: 20200128

REACTIONS (20)
  - Feeling hot [Recovered/Resolved]
  - Dizziness [Recovered/Resolved]
  - Anxiety [Unknown]
  - Insomnia [Unknown]
  - Psoriatic arthropathy [Unknown]
  - Head discomfort [Recovered/Resolved]
  - Pain in extremity [Not Recovered/Not Resolved]
  - Pyrexia [Recovered/Resolved]
  - Malaise [Unknown]
  - Pain [Recovering/Resolving]
  - Gait disturbance [Unknown]
  - Product dose omission issue [Unknown]
  - Headache [Recovered/Resolved]
  - Spinal cord disorder [Unknown]
  - Dry skin [Not Recovered/Not Resolved]
  - Breast mass [Unknown]
  - Headache [Recovering/Resolving]
  - Arthralgia [Not Recovered/Not Resolved]
  - Immune system disorder [Unknown]
  - Cataract [Recovering/Resolving]

NARRATIVE: CASE EVENT DATE: 20191031
